FAERS Safety Report 12299660 (Version 20)
Quarter: 2018Q3

REPORT INFORMATION
  Report Type: Spontaneous
  Country: US (occurrence: US)
  Receive Date: 20160425
  Receipt Date: 20180709
  Transmission Date: 20181010
  Serious: Yes (Hospitalization, Other)
  Sender: FDA-Public Use
  Company Number: US-PFIZER INC-2016228376

PATIENT
  Age: 69 Year
  Sex: Female
  Weight: 98.88 kg

DRUGS (54)
  1. XELJANZ [Suspect]
     Active Substance: TOFACITINIB CITRATE
     Dosage: 5 MG, UNK
     Route: 048
  2. TEA TREE OIL. [Concomitant]
     Active Substance: TEA TREE OIL
     Indication: ONYCHOMYCOSIS
     Dosage: UNK
  3. XELJANZ [Suspect]
     Active Substance: TOFACITINIB CITRATE
     Dosage: 5 MG, 2X/DAY
     Route: 048
     Dates: start: 2016
  4. LISINOPRIL/HCTZ [Concomitant]
     Active Substance: HYDROCHLOROTHIAZIDE\LISINOPRIL
     Indication: HYPERTENSION
     Dosage: 1 TABLET DAILY
     Route: 048
     Dates: start: 2016
  5. ALIGN [Concomitant]
     Active Substance: BIFIDOBACTERIUM LONGUM SUBSP. INFANTIS
     Dosage: 1 DF, DAILY
  6. ALBUTEROL SULFATE. [Concomitant]
     Active Substance: ALBUTEROL SULFATE
     Indication: BRONCHITIS
     Dosage: 1 DF, WEEKLY
  7. ALBUTEROL SULFATE. [Concomitant]
     Active Substance: ALBUTEROL SULFATE
     Indication: HYPERSENSITIVITY
  8. PROAIR HFA [Concomitant]
     Active Substance: ALBUTEROL SULFATE
     Dosage: 8.5GM AT 2 PUFFS EVERY 4 TO 6 HRS AS NEEDED
  9. ALENDRONATE SODIUM. [Concomitant]
     Active Substance: ALENDRONATE SODIUM
     Indication: OSTEOARTHRITIS
     Dosage: 70 MG, WEEKLY
     Route: 048
  10. XELJANZ [Suspect]
     Active Substance: TOFACITINIB CITRATE
     Indication: RHEUMATOID ARTHRITIS
     Dosage: 5 MG, 2X/DAY
     Route: 048
     Dates: start: 20160411
  11. XELJANZ [Suspect]
     Active Substance: TOFACITINIB CITRATE
     Dosage: 5 MG, 2X/DAY
     Route: 048
     Dates: start: 2016
  12. METHOTREXATE. [Concomitant]
     Active Substance: METHOTREXATE
     Indication: RHEUMATOID ARTHRITIS
     Dosage: 25 MG, WEEKLY (6 CCS)
     Route: 030
  13. CENTRUM SILVER WOMEN 50+ [Concomitant]
     Indication: VITAMIN SUPPLEMENTATION
     Dosage: 1 DAILY
     Route: 048
  14. FLUTICASONE PROPIONATE. [Concomitant]
     Active Substance: FLUTICASONE PROPIONATE
     Dosage: 50 UG, UNK
  15. BREO ELLIPTA [Concomitant]
     Active Substance: FLUTICASONE FUROATE\VILANTEROL TRIFENATATE
     Dosage: 1 DF, DAILY
     Route: 055
  16. XELJANZ [Suspect]
     Active Substance: TOFACITINIB CITRATE
     Indication: ARTHRITIS
     Dosage: 5 MG, 2X/DAY
     Route: 048
     Dates: start: 2016
  17. XELJANZ [Suspect]
     Active Substance: TOFACITINIB CITRATE
     Dosage: 5 MG, 2X/DAY
     Route: 048
     Dates: start: 2016
  18. XELJANZ [Suspect]
     Active Substance: TOFACITINIB CITRATE
     Dosage: 5 MG, 2X/DAY
     Route: 048
  19. LEVOTHYROXINE. [Concomitant]
     Active Substance: LEVOTHYROXINE
     Indication: HYPOTHYROIDISM
     Dosage: 100 UG, 1X/DAY
     Route: 048
  20. FOLIC ACID. [Concomitant]
     Active Substance: FOLIC ACID
     Indication: PROPHYLAXIS
     Dosage: 1 MG, 2X/DAY (1 TWO TIMES DAILY)
  21. FOLIC ACID. [Concomitant]
     Active Substance: FOLIC ACID
     Dosage: 800 UG, 3X/DAY
     Route: 048
  22. MONTELUKAST [Concomitant]
     Active Substance: MONTELUKAST SODIUM
     Indication: HYPERSENSITIVITY
     Dosage: 10 MG, 1X/DAY (DAILY)
     Route: 048
  23. POTASSIUM [Concomitant]
     Active Substance: POTASSIUM
     Indication: BLOOD POTASSIUM DECREASED
     Dosage: 10 MEQ, 3X/DAY
     Route: 048
  24. PREDNISONE. [Concomitant]
     Active Substance: PREDNISONE
     Indication: RHEUMATOID ARTHRITIS
     Dosage: 2.5 MG, DAILY
  25. METHOTREXATE. [Concomitant]
     Active Substance: METHOTREXATE
     Indication: OSTEOARTHRITIS
  26. ALBUTEROL SULFATE. [Concomitant]
     Active Substance: ALBUTEROL SULFATE
     Indication: ASTHMA
     Dosage: 2.5 MG/3 ML, AS NEEDED, EVERY 6 HOURS
  27. MUPIROCIN. [Concomitant]
     Active Substance: MUPIROCIN
     Indication: EPISTAXIS
     Dosage: UNK, AS NEEDED (2 TIMES DAILY)
     Route: 045
  28. REFRESH OPTIVE [Concomitant]
     Active Substance: CARBOXYMETHYLCELLULOSE SODIUM\GLYCERIN
     Indication: MACULAR DEGENERATION
     Dosage: UNK, AS NEEDED
  29. ALENDRONATE SODIUM. [Concomitant]
     Active Substance: ALENDRONATE SODIUM
     Indication: SUPPLEMENTATION THERAPY
  30. LEVOTHYROXINE. [Concomitant]
     Active Substance: LEVOTHYROXINE
     Dosage: 0.88 MG, 1X/DAY
     Route: 048
  31. NASONEX [Concomitant]
     Active Substance: MOMETASONE FUROATE
     Dosage: UNK, AS NEEDED (1 SPRAY DAILY)
  32. OMEPRAZOLE. [Concomitant]
     Active Substance: OMEPRAZOLE
     Dosage: 20 MG, DAILY (BEFORE MEAL)
  33. WAL ZYR NOS [Concomitant]
     Active Substance: CETIRIZINE HYDROCHLORIDE OR KETOTIFEN FUMARATE
     Dosage: 10 MG, DAILY
  34. XELJANZ [Suspect]
     Active Substance: TOFACITINIB CITRATE
     Dosage: 5 MG, (1? 2 X DAILY)
     Route: 048
  35. XELJANZ [Suspect]
     Active Substance: TOFACITINIB CITRATE
     Dosage: 5 MG, UNK
     Route: 048
  36. PREDNISONE. [Concomitant]
     Active Substance: PREDNISONE
     Indication: OSTEOARTHRITIS
     Dosage: 1 MG, DAILY
     Route: 048
  37. CALCIUM/VITAMIN D [Concomitant]
     Active Substance: CALCIUM\VITAMIN D
     Indication: OSTEOARTHRITIS
     Dosage: 1200MG/1000IU 2 CAPSULES
     Route: 048
  38. ATORVASTATIN [Concomitant]
     Active Substance: ATORVASTATIN
     Indication: BLOOD CHOLESTEROL INCREASED
     Dosage: 10 MG 1 TABLET IN THE EVENING
     Route: 048
     Dates: start: 2016
  39. CALCIUM [Concomitant]
     Active Substance: CALCIUM
     Dosage: 1 DF, WEEKLY
  40. FOLIC ACID. [Concomitant]
     Active Substance: FOLIC ACID
     Dosage: 800 UG, 2X/WEEK
  41. PREDNISONE. [Concomitant]
     Active Substance: PREDNISONE
     Dosage: 1 MG, ALTERNATE DAY
  42. PREDNISONE. [Concomitant]
     Active Substance: PREDNISONE
     Dosage: 20 MG, UNK (2 DAYS)
  43. PREDNISONE. [Concomitant]
     Active Substance: PREDNISONE
     Dosage: 10 MG, UNK (2 DAYS)
  44. CALCIUM/VITAMIN D [Concomitant]
     Active Substance: CALCIUM\VITAMIN D
     Indication: SUPPLEMENTATION THERAPY
  45. OXYBUTYNIN. [Concomitant]
     Active Substance: OXYBUTYNIN CHLORIDE
     Indication: INCONTINENCE
     Dosage: 10 MG, DAILY, (1AND1/2 TABLETS)
  46. OXYBUTYNIN. [Concomitant]
     Active Substance: OXYBUTYNIN CHLORIDE
     Dosage: 15 MG, DAILY
     Route: 048
     Dates: start: 2016
  47. ALENDRONATE SODIUM. [Concomitant]
     Active Substance: ALENDRONATE SODIUM
     Indication: BONE LOSS
  48. ASPIRIN. [Concomitant]
     Active Substance: ASPIRIN
     Dosage: UNK
  49. XELJANZ [Suspect]
     Active Substance: TOFACITINIB CITRATE
     Indication: OSTEOARTHRITIS
     Dosage: 5 MG, 2X/DAY
     Route: 048
  50. PREDNISONE. [Concomitant]
     Active Substance: PREDNISONE
     Dosage: 5 MG, UNK (2 DAYS)
  51. MAGNESIUM/ZINC [Concomitant]
     Dosage: 3 DF, UNK
  52. ADVAIR HFA [Concomitant]
     Active Substance: FLUTICASONE PROPIONATE\SALMETEROL XINAFOATE
     Dosage: UNK
  53. ANTIVERT [Concomitant]
     Active Substance: MECLIZINE HYDROCHLORIDE
     Indication: VERTIGO
     Dosage: 25 MG, AS NEEDED, EVERY 8 HOURS
  54. PERIDEX [Concomitant]
     Active Substance: CHLORHEXIDINE GLUCONATE
     Dosage: 30 SECONDS AFTER BREAKFAST AND AT BEDTIME
     Route: 048

REACTIONS (28)
  - Weight decreased [Unknown]
  - Vomiting [Recovered/Resolved]
  - Laboratory test abnormal [Unknown]
  - Diarrhoea [Not Recovered/Not Resolved]
  - Urinary tract infection [Unknown]
  - Limb injury [Unknown]
  - Balance disorder [Unknown]
  - Arthropathy [Not Recovered/Not Resolved]
  - Sinusitis [Recovering/Resolving]
  - Bronchitis chronic [Recovered/Resolved]
  - Immune system disorder [Unknown]
  - Pneumonia [Recovered/Resolved]
  - Fall [Unknown]
  - Joint injury [Unknown]
  - Vertigo [Unknown]
  - Viral infection [Unknown]
  - Diverticulitis [Unknown]
  - Eye disorder [Unknown]
  - Blood cholesterol increased [Recovering/Resolving]
  - Sunburn [Recovering/Resolving]
  - Photosensitivity reaction [Unknown]
  - Nasopharyngitis [Unknown]
  - Malaise [Recovered/Resolved]
  - Pain [Unknown]
  - Diplopia [Unknown]
  - Epistaxis [Unknown]
  - Condition aggravated [Unknown]
  - Body height decreased [Unknown]

NARRATIVE: CASE EVENT DATE: 20160418
